FAERS Safety Report 25258424 (Version 1)
Quarter: 2025Q2

REPORT INFORMATION
  Report Type: Spontaneous
  Country: FR (occurrence: FR)
  Receive Date: 20250501
  Receipt Date: 20250501
  Transmission Date: 20250716
  Serious: Yes (Death, Other)
  Sender: AUROBINDO
  Company Number: FR-AFSSAPS-RS2025000370

PATIENT
  Age: 89 Year
  Sex: Female
  Weight: 50.9 kg

DRUGS (6)
  1. FUROSEMIDE [Suspect]
     Active Substance: FUROSEMIDE
     Indication: Oedema peripheral
     Dosage: 100 MILLIGRAM, ONCE A DAY
     Route: 048
  2. MELATONIN [Suspect]
     Active Substance: MELATONIN
     Indication: Sleep disorder
     Dosage: 4 MILLIGRAM, ONCE A DAY
     Route: 048
     Dates: start: 20241002
  3. INFLUVAC TETRA [Suspect]
     Active Substance: INFLUENZA VIRUS VACCINE QUADRIVALENT TYPE A+B
     Indication: Immunisation
     Route: 030
     Dates: start: 20241114, end: 20241114
  4. RAMIPRIL [Suspect]
     Active Substance: RAMIPRIL
     Indication: Product used for unknown indication
     Dosage: 2.5 MILLIGRAM, ONCE A DAY
     Route: 048
  5. KARDEGIC [Suspect]
     Active Substance: ASPIRIN DL-LYSINE
     Indication: Transient ischaemic attack
     Dosage: 75 MILLIGRAM, ONCE A DAY
     Route: 048
     Dates: start: 20240723, end: 20241118
  6. ENOXAPARIN SODIUM [Suspect]
     Active Substance: ENOXAPARIN SODIUM
     Indication: Thrombosis prophylaxis
     Dosage: 4000 INTERNATIONAL UNIT, ONCE A DAY
     Route: 058
     Dates: start: 20241115, end: 20241118

REACTIONS (2)
  - Cerebral haematoma [Fatal]
  - Fall [Fatal]

NARRATIVE: CASE EVENT DATE: 20241114
